FAERS Safety Report 23700314 (Version 4)
Quarter: 2024Q2

REPORT INFORMATION
  Report Type: Spontaneous
  Country: JP (occurrence: JP)
  Receive Date: 20240403
  Receipt Date: 20240418
  Transmission Date: 20240716
  Serious: Yes (Hospitalization, Other)
  Sender: FDA-Public Use
  Company Number: None

PATIENT

DRUGS (7)
  1. BENLYSTA [Suspect]
     Active Substance: BELIMUMAB
     Indication: Systemic lupus erythematosus
     Dosage: 200 MG, WE
     Route: 058
     Dates: start: 20220419
  2. BENLYSTA [Suspect]
     Active Substance: BELIMUMAB
     Dosage: 200 MG, WE
     Route: 058
  3. PREDONINE [Suspect]
     Active Substance: PREDNISOLONE
     Indication: Systemic lupus erythematosus
     Dosage: UNK
     Route: 048
  4. PLAQUENIL [Suspect]
     Active Substance: HYDROXYCHLOROQUINE SULFATE
     Indication: Systemic lupus erythematosus
     Dosage: UNK
     Route: 048
  5. CELLCEPT [Suspect]
     Active Substance: MYCOPHENOLATE MOFETIL
     Indication: Lupus nephritis
     Dosage: UNK
     Route: 048
  6. SULFAMETHOXAZOLE\TRIMETHOPRIM [Suspect]
     Active Substance: SULFAMETHOXAZOLE\TRIMETHOPRIM
     Dosage: 1 G, QD
  7. PROGRAF [Suspect]
     Active Substance: TACROLIMUS
     Dosage: 1 MG, 3 MG/DAY

REACTIONS (1)
  - Neutropenia [Recovered/Resolved]
